FAERS Safety Report 21184363 (Version 2)
Quarter: 2023Q1

REPORT INFORMATION
  Report Type: Report from Study
  Country: NL (occurrence: None)
  Receive Date: 20220808
  Receipt Date: 20230202
  Transmission Date: 20230417
  Serious: Yes (Hospitalization)
  Sender: FDA-Public Use
  Company Number: NL-ROCHE-3153754

PATIENT
  Age: 67 Year
  Sex: Female

DRUGS (6)
  1. VEMURAFENIB [Suspect]
     Active Substance: VEMURAFENIB
     Indication: Neoplasm
     Dosage: MOST RECENT DOSE WAS GIVEN ON 02/AUG/2022
     Route: 048
     Dates: start: 20220728
  2. COBIMETINIB [Suspect]
     Active Substance: COBIMETINIB
     Indication: Neoplasm
     Dosage: MOST RECENT DOSE WAS GIVEN ON 02/AUG/2023
     Route: 048
     Dates: start: 20220728
  3. FAMOTIDINE [Concomitant]
     Active Substance: FAMOTIDINE
  4. VALACYCLOVIR HYDROCHLORIDE [Concomitant]
     Active Substance: VALACYCLOVIR HYDROCHLORIDE
  5. DESMOPRESSIN [Concomitant]
     Active Substance: DESMOPRESSIN
     Dosage: 05- 0.1 MG, 2DD
     Dates: end: 20220809
  6. FLUCLOXACILLIN [Concomitant]
     Active Substance: FLUCLOXACILLIN
     Indication: Thrombophlebitis
     Route: 042
     Dates: start: 20220808, end: 20220823

REACTIONS (1)
  - Hyponatraemia [Recovered/Resolved]

NARRATIVE: CASE EVENT DATE: 20220802
